FAERS Safety Report 11615755 (Version 1)
Quarter: 2015Q4

REPORT INFORMATION
  Report Type: Spontaneous
  Country: None (occurrence: None)
  Receive Date: 20151008
  Receipt Date: 20151008
  Transmission Date: 20160304
  Serious: Yes (Other)
  Sender: FDA-Public Use
  Company Number: None

PATIENT
  Age: 40 Year
  Sex: Male
  Weight: 68.04 kg

DRUGS (3)
  1. DURAGESIC [Suspect]
     Active Substance: FENTANYL
     Indication: OFF LABEL USE
     Dosage: 50 Q72HOURS
     Route: 062
  2. DURAGESIC [Suspect]
     Active Substance: FENTANYL
     Indication: PROCEDURAL PAIN
     Dosage: 50 Q72HOURS
     Route: 062
  3. ENSURE NUTRITIONAL SUPPLEMENTS [Concomitant]

REACTIONS (3)
  - Off label use [None]
  - Product use issue [None]
  - Drug prescribing error [None]

NARRATIVE: CASE EVENT DATE: 20150922
